FAERS Safety Report 5073869-8 (Version None)
Quarter: 2006Q3

REPORT INFORMATION
  Report Type: 
  Country: None (occurrence: None)
  Receive Date: 20060808
  Receipt Date: 20060803
  Transmission Date: 20061208
  Serious: Yes (Hospitalization)
  Sender: FDA-Public Use
  Company Number: 2006CG01318

PATIENT
  Age: 76 Year
  Sex: Male

DRUGS (7)
  1. OMEPRAZOLE [Suspect]
     Route: 048
     Dates: start: 20060216, end: 20060329
  2. BACTRIM [Suspect]
     Route: 048
     Dates: start: 20060320, end: 20060329
  3. PREVISCAN [Suspect]
     Route: 048
     Dates: start: 20060101, end: 20060329
  4. HYZAAR [Suspect]
     Route: 048
     Dates: end: 20060329
  5. VERAPAMIL [Concomitant]
  6. CIPRALAN [Concomitant]
  7. MOTILIUM [Concomitant]
     Dates: start: 20060216

REACTIONS (4)
  - EPIDIDYMITIS [None]
  - GENERAL PHYSICAL HEALTH DETERIORATION [None]
  - RENAL FAILURE ACUTE [None]
  - TESTICULAR SWELLING [None]
